FAERS Safety Report 8585415-2 (Version None)
Quarter: 2012Q3

REPORT INFORMATION
  Report Type: 
  Country: None (occurrence: None)
  Receive Date: 20120810
  Receipt Date: 20120807
  Transmission Date: 20120928
  Serious: Yes (Other)
  Sender: FDA-Public Use
  Company Number: US-SANOFI-AVENTIS-2012SA045828

PATIENT
  Age: 84 Year
  Sex: Male
  Weight: 66 kg

DRUGS (12)
  1. WARFARIN SODIUM [Concomitant]
  2. LUMIGAN [Concomitant]
  3. ASCORBIC ACID [Concomitant]
  4. ASPIRIN [Concomitant]
  5. METOPROLOL TARTRATE [Concomitant]
  6. ISOSORBIDE [Concomitant]
  7. ROSUVASTATIN [Concomitant]
     Dates: start: 20110101
  8. MULTIVITAMIN [Concomitant]
  9. MULTAQ [Suspect]
     Indication: ATRIAL FIBRILLATION
     Route: 048
     Dates: start: 20110421
  10. ALPHAGAN [Concomitant]
  11. VITAMIN D [Concomitant]
  12. LOTEMAX [Concomitant]

REACTIONS (5)
  - HEART RATE IRREGULAR [None]
  - HYPERTENSION [None]
  - GLAUCOMA [None]
  - CONDITION AGGRAVATED [None]
  - OCULAR HYPERAEMIA [None]
